FAERS Safety Report 5630997-3 (Version None)
Quarter: 2008Q1

REPORT INFORMATION
  Report Type: 
  Country: None (occurrence: None)
  Receive Date: 20080219
  Receipt Date: 20080207
  Transmission Date: 20080703
  Serious: Yes (Hospitalization, Other)
  Sender: FDA-Public Use
  Company Number: US-ELI_LILLY_AND_COMPANY-US200711006436

PATIENT
  Age: 83 Year
  Sex: Female

DRUGS (9)
  1. FORTEO [Suspect]
     Indication: OSTEOPOROSIS
     Dosage: 20 UG, DAILY (1/D)
     Dates: start: 20060722
  2. FORTEO [Suspect]
  3. FORTEO [Suspect]
  4. COUMADIN [Concomitant]
     Dosage: 2.5 MG, UNK
  5. ASPIRIN [Concomitant]
     Dosage: 81 MG, UNK
  6. METOPROLOL TARTRATE [Concomitant]
     Dosage: 25 MG, 3/D
  7. LASIX [Concomitant]
     Dosage: 20 MG, QOD
  8. ZOCOR [Concomitant]
     Dosage: 10 MG, DAILY (1/D)
  9. DIOVAN [Concomitant]
     Indication: HYPERTENSION
     Dosage: 80 MG, DAILY (1/D)

REACTIONS (4)
  - ARTERIOSCLEROSIS CORONARY ARTERY [None]
  - ATRIAL FIBRILLATION [None]
  - IRRITABILITY [None]
  - RASH MACULAR [None]
